FAERS Safety Report 25505424 (Version 1)
Quarter: 2025Q3

REPORT INFORMATION
  Report Type: Spontaneous
  Country: US (occurrence: None)
  Receive Date: 20250702
  Receipt Date: 20250702
  Transmission Date: 20251020
  Serious: Yes (Hospitalization)
  Sender: FDA-CTU
  Company Number: None

PATIENT
  Age: 55 Year
  Sex: Female

DRUGS (1)
  1. DOCETAXEL [Suspect]
     Active Substance: DOCETAXEL
     Route: 042
     Dates: start: 20250624, end: 20250624

REACTIONS (8)
  - Infusion related reaction [None]
  - Malaise [None]
  - Flushing [None]
  - Dyspnoea [None]
  - Head discomfort [None]
  - Loss of consciousness [None]
  - Mydriasis [None]
  - Somnolence [None]

NARRATIVE: CASE EVENT DATE: 20250624
